FAERS Safety Report 10347482 (Version 1)
Quarter: 2014Q3

REPORT INFORMATION
  Report Type: Spontaneous
  Country: US (occurrence: US)
  Receive Date: 20140729
  Receipt Date: 20140729
  Transmission Date: 20150326
  Serious: No
  Sender: FDA-Public Use
  Company Number: US-SHIRE-US201404324

PATIENT
  Age: 18 Year
  Sex: Male
  Weight: 99.77 kg

DRUGS (4)
  1. VYVANSE [Suspect]
     Active Substance: LISDEXAMFETAMINE DIMESYLATE
     Indication: ATTENTION DEFICIT/HYPERACTIVITY DISORDER
     Dosage: 50 UNK, UNK
     Route: 048
     Dates: start: 20140723, end: 20140723
  2. ZYRTEC [Concomitant]
     Active Substance: CETIRIZINE HYDROCHLORIDE
     Indication: SEASONAL ALLERGY
     Dosage: 10 MG, 1X/DAY:QD
     Route: 048
     Dates: start: 2013
  3. ZOLOFT [Concomitant]
     Active Substance: SERTRALINE HYDROCHLORIDE
     Indication: ANXIETY DISORDER
     Dosage: 70 MG, 1X/DAY:QD
     Route: 048
     Dates: start: 2012
  4. SINGULAIR [Concomitant]
     Active Substance: MONTELUKAST SODIUM
     Indication: ASTHMA
     Dosage: 10 MG, 1X/DAY:QD (AT NIGHT)
     Route: 048
     Dates: start: 2012

REACTIONS (6)
  - Nervousness [Recovered/Resolved]
  - Change in sustained attention [Recovered/Resolved]
  - Sensory disturbance [Recovered/Resolved]
  - Feeling abnormal [Recovered/Resolved]
  - Adverse drug reaction [Unknown]
  - Paranoia [Recovered/Resolved]

NARRATIVE: CASE EVENT DATE: 20140723
